FAERS Safety Report 7942097-8 (Version None)
Quarter: 2011Q4

REPORT INFORMATION
  Report Type: 
  Country: None (occurrence: None)
  Receive Date: 20111114
  Receipt Date: 20110708
  Transmission Date: 20120403
  Serious: Yes (Life-Threatening, Other)
  Sender: FDA-Public Use
  Company Number: 2011029162

PATIENT
  Age: 47 Year
  Sex: Female
  Weight: 63.5036 kg

DRUGS (18)
  1. XANAX [Concomitant]
  2. RISPERDAL [Concomitant]
  3. ZOLOFT [Concomitant]
  4. ACETAMINOPHEN [Concomitant]
  5. CARISOPRODOL [Concomitant]
  6. LIPITOR [Concomitant]
  7. FERROUS SULFATE TAB [Concomitant]
  8. HIZENTRA [Suspect]
  9. HIZENTRA [Suspect]
  10. DARVOCET [Concomitant]
  11. COGENTIN [Concomitant]
  12. HIZENTRA [Suspect]
     Indication: IMMUNODEFICIENCY COMMON VARIABLE
     Dosage: SEE IMAGE
     Route: 058
     Dates: start: 20101006
  13. HIZENTRA [Suspect]
     Indication: IMMUNODEFICIENCY COMMON VARIABLE
     Dosage: SEE IMAGE
     Route: 058
     Dates: start: 20110706
  14. ZITHROMAX [Concomitant]
  15. OBETROL [Concomitant]
  16. FLEXERIL [Concomitant]
  17. NEXIUM [Concomitant]
  18. TAGAMET [Concomitant]

REACTIONS (2)
  - PHARYNGEAL OEDEMA [None]
  - RASH [None]
